FAERS Safety Report 15262260 (Version 6)
Quarter: 2018Q3

REPORT INFORMATION
  Report Type: Spontaneous
  Country: US (occurrence: US)
  Receive Date: 20180809
  Receipt Date: 20180924
  Transmission Date: 20181010
  Serious: Yes (Hospitalization)
  Sender: FDA-Public Use
  Company Number: US-ACTELION-A-NJ2018-177180

PATIENT
  Age: 52 Year
  Sex: Male
  Weight: 131.52 kg

DRUGS (6)
  1. ADEMPAS [Concomitant]
     Active Substance: RIOCIGUAT
     Dosage: UNK
  2. REMODULIN [Concomitant]
     Active Substance: TREPROSTINIL
     Dosage: UNK
     Dates: end: 20180801
  3. UPTRAVI [Suspect]
     Active Substance: SELEXIPAG
     Indication: PULMONARY ARTERIAL HYPERTENSION
     Dosage: 1400 MCG, BID
     Route: 048
  4. UPTRAVI [Suspect]
     Active Substance: SELEXIPAG
     Dosage: 1200 MCG, BID
     Route: 048
  5. UPTRAVI [Suspect]
     Active Substance: SELEXIPAG
     Dosage: UNK
     Route: 048
  6. ADEMPAS [Concomitant]
     Active Substance: RIOCIGUAT
     Dosage: 0.5 MG, TID

REACTIONS (11)
  - Hypotension [Unknown]
  - Syncope [Unknown]
  - Dyspnoea [Unknown]
  - Ascites [Unknown]
  - Nausea [Unknown]
  - Haemodynamic instability [Unknown]
  - Catheter site pain [Unknown]
  - Flatulence [Unknown]
  - Pain in extremity [Unknown]
  - Flushing [Unknown]
  - Oedema [Unknown]

NARRATIVE: CASE EVENT DATE: 20180822
